FAERS Safety Report 8099213-X (Version None)
Quarter: 2012Q1

REPORT INFORMATION
  Report Type: 
  Country: None (occurrence: None)
  Receive Date: 20120129
  Receipt Date: 20111006
  Transmission Date: 20120608
  Serious: No
  Sender: FDA-Public Use
  Company Number: US-ABBOTT-11P-163-0860915-00

PATIENT
  Sex: Female
  Weight: 98.518 kg

DRUGS (2)
  1. HUMIRA [Suspect]
     Dosage: WEEKLY DOSE UNKNOWN
     Dates: start: 20100901, end: 20100901
  2. HUMIRA [Suspect]
     Indication: RHEUMATOID ARTHRITIS
     Dosage: UNKNOWN  WEEKLY DOSE
     Dates: start: 20080401, end: 20100101

REACTIONS (5)
  - CELLULITIS STAPHYLOCOCCAL [None]
  - OEDEMA PERIPHERAL [None]
  - CELLULITIS [None]
  - NAUSEA [None]
  - EPIGASTRIC DISCOMFORT [None]
